FAERS Safety Report 25437458 (Version 2)
Quarter: 2025Q3

REPORT INFORMATION
  Report Type: Spontaneous
  Country: US (occurrence: US)
  Receive Date: 20250616
  Receipt Date: 20250701
  Transmission Date: 20251020
  Serious: No
  Sender: SANOFI AVENTIS
  Company Number: US-SA-2025SA168251

PATIENT
  Age: 11 Month
  Sex: Female

DRUGS (2)
  1. DUPIXENT [Suspect]
     Active Substance: DUPILUMAB
     Indication: Eczema
     Dosage: 200 MG, Q4W
     Route: 058
     Dates: start: 20250428
  2. DUPIXENT [Suspect]
     Active Substance: DUPILUMAB
     Indication: Eczema infantile

REACTIONS (5)
  - Mobility decreased [Recovered/Resolved]
  - Emotional distress [Unknown]
  - Pruritus [Not Recovered/Not Resolved]
  - Product dose omission in error [Unknown]
  - Off label use of device [Unknown]

NARRATIVE: CASE EVENT DATE: 20250101
